FAERS Safety Report 4745696-X (Version None)
Quarter: 2005Q3

REPORT INFORMATION
  Report Type: 
  Country: None (occurrence: None)
  Receive Date: 20050811
  Receipt Date: 20050803
  Transmission Date: 20060218
  Serious: Yes (Other)
  Sender: FDA-Public Use
  Company Number: 2005106609

PATIENT
  Age: 67 Year
  Sex: Male

DRUGS (4)
  1. NORVASC [Suspect]
     Indication: HYPERTENSION
     Dosage: 10 MG (10 MG, 1 IN 1 D), ORAL
     Route: 048
     Dates: start: 20000101
  2. EFFEXOR [Concomitant]
  3. FLURAZEPAM [Concomitant]
  4. DIAZEPAM [Concomitant]

REACTIONS (12)
  - ARRHYTHMIA [None]
  - CHEST PAIN [None]
  - DIFFICULTY IN WALKING [None]
  - DIZZINESS [None]
  - DYSPNOEA [None]
  - ELECTROCARDIOGRAM ABNORMAL [None]
  - HYPOTENSION [None]
  - INTENTIONAL MISUSE [None]
  - MYALGIA [None]
  - NODAL RHYTHM [None]
  - OVERDOSE [None]
  - SUICIDE ATTEMPT [None]
